FAERS Safety Report 10420848 (Version 1)
Quarter: 2014Q3

REPORT INFORMATION
  Report Type: Spontaneous
  Country: US (occurrence: None)
  Receive Date: 20140829
  Receipt Date: 20140829
  Transmission Date: 20150326
  Serious: No
  Sender: FDA-Public Use
  Company Number: None

PATIENT
  Age: 74 Year
  Sex: Female

DRUGS (1)
  1. FORTEO [Suspect]
     Active Substance: TERIPARATIDE
     Route: 058
     Dates: start: 20130318

REACTIONS (3)
  - Dyspnoea [None]
  - Speech disorder [None]
  - Activities of daily living impaired [None]

NARRATIVE: CASE EVENT DATE: 20140808
